FAERS Safety Report 4759478-6 (Version None)
Quarter: 2005Q3

REPORT INFORMATION
  Report Type: 
  Country: None (occurrence: None)
  Receive Date: 20050831
  Receipt Date: 20050818
  Transmission Date: 20060218
  Serious: Yes (Death, Hospitalization, Other)
  Sender: FDA-Public Use
  Company Number: US-2005-006979

PATIENT
  Age: 75 Year
  Sex: Female

DRUGS (8)
  1. BETASERON [Suspect]
     Indication: PROGRESSIVE MULTIPLE SCLEROSIS
     Dosage: SUBCUTANEOUS
     Route: 058
     Dates: start: 19950406, end: 20030613
  2. SYNTHROID [Concomitant]
  3. ALDACTONE [Concomitant]
  4. REGLAN   /USA/  (METOCLOPRAMIDE HYDROCHLORIDE) [Concomitant]
  5. QUININE SULFATE [Concomitant]
  6. CLONAZEPAM [Concomitant]
  7. FIBERCON (POLYCARBOPHIL CALCIUM) [Concomitant]
  8. CIPROFLOXACIN HCL [Concomitant]

REACTIONS (14)
  - ABDOMINAL PAIN [None]
  - COLON CANCER METASTATIC [None]
  - CONDITION AGGRAVATED [None]
  - DIVERTICULITIS [None]
  - HYPERHIDROSIS [None]
  - ILEUS [None]
  - MALNUTRITION [None]
  - MULTIPLE SCLEROSIS [None]
  - NEUROGENIC BLADDER [None]
  - OEDEMA PERIPHERAL [None]
  - OVARIAN CANCER [None]
  - PERITONITIS BACTERIAL [None]
  - RASH [None]
  - URINARY TRACT INFECTION [None]
